FAERS Safety Report 14521967 (Version 1)
Quarter: 2018Q1

REPORT INFORMATION
  Report Type: Spontaneous
  Country: US (occurrence: US)
  Receive Date: 20180212
  Receipt Date: 20180212
  Transmission Date: 20180509
  Serious: No
  Sender: FDA-Public Use
  Company Number: US-009507513-1802USA005464

PATIENT
  Sex: Female

DRUGS (2)
  1. DESLORATADINE. [Suspect]
     Active Substance: DESLORATADINE
     Indication: BRONCHITIS
  2. DESLORATADINE. [Suspect]
     Active Substance: DESLORATADINE
     Indication: RESPIRATORY DISORDER
     Dosage: UNK
     Route: 048

REACTIONS (1)
  - Adverse event [Recovered/Resolved]
